FAERS Safety Report 5511730-2 (Version None)
Quarter: 2007Q4

REPORT INFORMATION
  Report Type: 
  Country: None (occurrence: None)
  Receive Date: 20071109
  Receipt Date: 20071026
  Transmission Date: 20080405
  Serious: Yes (Death, Hospitalization)
  Sender: FDA-Public Use
  Company Number: DE-GENENTECH-249131

PATIENT
  Sex: Female
  Weight: 66.667 kg

DRUGS (2)
  1. BEVACIZUMAB [Suspect]
     Indication: BREAST CANCER
     Dosage: 10 MG/M2, UNK
     Route: 042
     Dates: start: 20070919
  2. TAXOL [Concomitant]
     Indication: BREAST CANCER
     Dates: start: 20070821

REACTIONS (4)
  - CEREBRAL ARTERY EMBOLISM [None]
  - LEFT VENTRICULAR DYSFUNCTION [None]
  - PANCYTOPENIA [None]
  - RENAL FAILURE [None]
